FAERS Safety Report 7214027-8 (Version None)
Quarter: 2011Q1

REPORT INFORMATION
  Report Type: 
  Country: None (occurrence: None)
  Receive Date: 20110107
  Receipt Date: 20101231
  Transmission Date: 20110831
  Serious: Yes (Hospitalization)
  Sender: FDA-Public Use
  Company Number: US-BIOGENIDEC-2010BI044123

PATIENT
  Age: 45 Year
  Sex: Female

DRUGS (7)
  1. AVONEX [Suspect]
     Indication: MULTIPLE SCLEROSIS
     Route: 030
     Dates: start: 20010426, end: 20051220
  2. GABAPENTIN [Concomitant]
  3. HYDROCHLOROTHIAZIDE [Concomitant]
  4. AVONEX [Suspect]
     Route: 030
     Dates: start: 20080530, end: 20101101
  5. ZOLPIDEM TARTRATE [Concomitant]
  6. AVONEX [Suspect]
     Route: 030
  7. ALLEGRA [Concomitant]

REACTIONS (1)
  - OVARIAN CYST [None]
